FAERS Safety Report 17115480 (Version 1)
Quarter: 2019Q4

REPORT INFORMATION
  Report Type: Report from Study
  Country: SV (occurrence: SV)
  Receive Date: 20191205
  Receipt Date: 20191205
  Transmission Date: 20200122
  Serious: Yes (Death, Other)
  Sender: FDA-Public Use
  Company Number: NVSC2019SV059229

PATIENT
  Age: 80 Year
  Sex: Female

DRUGS (1)
  1. GLIVEC [Suspect]
     Active Substance: IMATINIB MESYLATE
     Indication: CHRONIC MYELOID LEUKAEMIA
     Dosage: 400 MG
     Route: 065

REACTIONS (4)
  - Respiratory arrest [Fatal]
  - Asthenia [Unknown]
  - Diabetes mellitus [Unknown]
  - Malaise [Unknown]

NARRATIVE: CASE EVENT DATE: 20190921
